FAERS Safety Report 19003228 (Version 4)
Quarter: 2022Q3

REPORT INFORMATION
  Report Type: Spontaneous
  Country: CO (occurrence: CO)
  Receive Date: 20210312
  Receipt Date: 20220915
  Transmission Date: 20221026
  Serious: Yes (Hospitalization, Other)
  Sender: FDA-Public Use
  Company Number: CO-SA-SAC20210308000218

PATIENT
  Sex: Male

DRUGS (2)
  1. PRALUENT [Suspect]
     Active Substance: ALIROCUMAB
     Indication: Type IIa hyperlipidaemia
     Dosage: UNK
     Route: 058
     Dates: start: 20200919
  2. PRALUENT [Suspect]
     Active Substance: ALIROCUMAB
     Dosage: 75 MG, Q15D
     Route: 058
     Dates: start: 20210616

REACTIONS (5)
  - Cerebral thrombosis [Recovering/Resolving]
  - Visual impairment [Recovering/Resolving]
  - Balance disorder [Recovering/Resolving]
  - Fall [Recovering/Resolving]
  - Swelling [Recovering/Resolving]

NARRATIVE: CASE EVENT DATE: 20210201
